FAERS Safety Report 9219653 (Version 1)
Quarter: 2013Q1

REPORT INFORMATION
  Report Type: Spontaneous
  Country: US (occurrence: None)
  Receive Date: 20120830
  Receipt Date: 20120830
  Transmission Date: 20140127
  Serious: Yes (Other)
  Sender: FDA-Public Use
  Company Number: PHEH2012US008384

PATIENT
  Age: 72 Year
  Sex: Female

DRUGS (4)
  1. EXFORGE [Suspect]
     Dosage: 1 DF, (VALS 320, AMLO 5 MG)
  2. HYDROCHLOROTHIAZIDE [Suspect]
  3. LOVASTATIN (LOVASTATIN) [Concomitant]
  4. XANAX (ALPRAZOLAM) [Concomitant]

REACTIONS (4)
  - Blood pressure decreased [None]
  - Joint swelling [None]
  - Abdominal discomfort [None]
  - Syncope [None]
